FAERS Safety Report 8199506-1 (Version None)
Quarter: 2012Q1

REPORT INFORMATION
  Report Type: 
  Country: None (occurrence: None)
  Receive Date: 20120310
  Receipt Date: 20120227
  Transmission Date: 20120608
  Serious: Yes (Other)
  Sender: FDA-Public Use
  Company Number: DE-AMGEN-DEUSP2012013874

PATIENT
  Age: 68 Year
  Sex: Female

DRUGS (1)
  1. ENBREL [Suspect]
     Indication: RHEUMATOID ARTHRITIS
     Dosage: 50 MG, WEEKLY
     Dates: start: 20100301

REACTIONS (5)
  - ORAL BACTERIAL INFECTION [None]
  - DEVICE RELATED INFECTION [None]
  - BONE LOSS [None]
  - MOUTH ULCERATION [None]
  - DEVICE CONNECTION ISSUE [None]
